FAERS Safety Report 22288296 (Version 1)
Quarter: 2023Q2

REPORT INFORMATION
  Report Type: Other
  Country: DE (occurrence: None)
  Receive Date: 20230505
  Receipt Date: 20230505
  Transmission Date: 20230721
  Serious: Yes (Hospitalization)
  Sender: FDA-Public Use
  Company Number: DE-ROCHE-3248274

PATIENT
  Age: 33 Year
  Sex: Female
  Weight: 84.82 kg

DRUGS (1)
  1. OCRELIZUMAB [Suspect]
     Active Substance: OCRELIZUMAB
     Indication: Relapsing-remitting multiple sclerosis
     Route: 065
     Dates: start: 20221111, end: 20221111

REACTIONS (2)
  - Maternal exposure timing unspecified [Unknown]
  - Abortion missed [Unknown]

NARRATIVE: CASE EVENT DATE: 20230118
